FAERS Safety Report 8853168 (Version 3)
Quarter: 2012Q4

REPORT INFORMATION
  Report Type: Report from Study
  Country: DE (occurrence: DE)
  Receive Date: 20121022
  Receipt Date: 20121205
  Transmission Date: 20130627
  Serious: Yes (Life-Threatening, Hospitalization)
  Sender: FDA-Public Use
  Company Number: DE-AMGEN-DEUCT2012066893

PATIENT
  Age: 68 Year
  Sex: Female

DRUGS (4)
  1. PANITUMUMAB [Suspect]
     Indication: OESOPHAGEAL ADENOCARCINOMA
     Dosage: 470 mg/kg, UNK
     Dates: start: 20111122
  2. EPIRUBICIN [Concomitant]
     Indication: OESOPHAGEAL ADENOCARCINOMA
     Dosage: 55 mg/m2, UNK
     Dates: start: 20111122
  3. CISPLATIN [Concomitant]
     Indication: OESOPHAGEAL ADENOCARCINOMA
     Dosage: 88 mg/m2, UNK
     Dates: start: 20111122
  4. CAPECITABINE [Concomitant]
     Indication: OESOPHAGEAL ADENOCARCINOMA
     Dosage: 1900 mg/m2, UNK
     Dates: start: 20111122

REACTIONS (1)
  - Pulmonary embolism [Recovered/Resolved]
